FAERS Safety Report 4847413-1 (Version None)
Quarter: 2005Q4

REPORT INFORMATION
  Report Type: 
  Country: None (occurrence: None)
  Receive Date: 20051205
  Receipt Date: 20051121
  Transmission Date: 20060501
  Serious: Yes (Hospitalization)
  Sender: FDA-Public Use
  Company Number: SU-2005-004291

PATIENT
  Age: 71 Year
  Sex: Female
  Weight: 81.6475 kg

DRUGS (4)
  1. WELCHOL [Suspect]
     Indication: DIARRHOEA
     Dosage: 312.5 MG QD PO
     Route: 048
     Dates: end: 20051118
  2. ACIPHEX [Concomitant]
  3. WOMEN'S VITAMIN [Concomitant]
  4. CALCIUM GLUCONATE [Concomitant]

REACTIONS (8)
  - BACK PAIN [None]
  - BLOOD PRESSURE INCREASED [None]
  - CHOLELITHIASIS [None]
  - FALL [None]
  - PANCREATITIS [None]
  - POST PROCEDURAL COMPLICATION [None]
  - PRURITUS [None]
  - WHITE BLOOD CELL COUNT INCREASED [None]
